FAERS Safety Report 9626409 (Version 1)
Quarter: 2013Q4

REPORT INFORMATION
  Report Type: Spontaneous
  Country: FR (occurrence: FR)
  Receive Date: 20131016
  Receipt Date: 20131016
  Transmission Date: 20140711
  Serious: Yes (Hospitalization)
  Sender: FDA-Public Use
  Company Number: FR-ASTRAZENECA-2013SE74841

PATIENT
  Age: 25404 Day
  Sex: Female

DRUGS (5)
  1. DIPRIVAN [Suspect]
     Indication: ANAESTHESIA
     Route: 042
     Dates: start: 20130626
  2. SPASFON [Concomitant]
     Dates: start: 20130626, end: 20130626
  3. AERIUS [Concomitant]
     Indication: RHINITIS ALLERGIC
     Dosage: IF NEEDED
  4. AERIUS [Concomitant]
     Indication: CONJUNCTIVITIS
     Dosage: IF NEEDED
  5. PARACETAMOL [Concomitant]
     Dates: end: 20130718

REACTIONS (1)
  - Hepatitis [Recovering/Resolving]
